FAERS Safety Report 6803912-4 (Version None)
Quarter: 2010Q2

REPORT INFORMATION
  Report Type: 
  Country: None (occurrence: None)
  Receive Date: 20100628
  Receipt Date: 20060612
  Transmission Date: 20101027
  Serious: Yes (Other)
  Sender: FDA-Public Use
  Company Number: US-PFIZER INC-2006074381

PATIENT
  Sex: Male
  Weight: 96.62 kg

DRUGS (7)
  1. SUTENT [Suspect]
     Indication: RENAL CELL CARCINOMA
     Dosage: DAILY
     Route: 065
     Dates: start: 20060101
  2. SYNTHROID [Concomitant]
     Route: 065
  3. ALBUTEROL [Concomitant]
     Route: 065
  4. PREDNISONE [Concomitant]
     Route: 065
  5. TUSSIONEX [Concomitant]
     Route: 065
  6. TESSALON [Concomitant]
     Route: 065
  7. VICODIN [Concomitant]
     Route: 065

REACTIONS (2)
  - HEADACHE [None]
  - HYPERTENSION [None]
